FAERS Safety Report 5787703-1 (Version None)
Quarter: 2008Q2

REPORT INFORMATION
  Report Type: 
  Country: None (occurrence: None)
  Receive Date: 20080624
  Receipt Date: 20080624
  Transmission Date: 20081010
  Serious: Yes (Hospitalization)
  Sender: FDA-Public Use
  Company Number: None

PATIENT
  Age: 54 Year
  Sex: Female
  Weight: 58.514 kg

DRUGS (2)
  1. PACLITAXEL [Suspect]
     Indication: OESOPHAGEAL CARCINOMA
     Dosage: 84 MG WEEKLY X6 IV
     Route: 042
     Dates: start: 20070501, end: 20080609
  2. CISPLATIN [Suspect]
     Indication: OESOPHAGEAL CARCINOMA
     Dosage: 42 MG WEEKLY X6 IV
     Route: 042
     Dates: start: 20070501, end: 20080609

REACTIONS (7)
  - DEHYDRATION [None]
  - HYPOTENSION [None]
  - LEUKOPENIA [None]
  - NAUSEA [None]
  - NEUTROPHIL COUNT ABNORMAL [None]
  - OESOPHAGITIS [None]
  - VOMITING [None]
